FAERS Safety Report 8861753 (Version 1)
Quarter: 2012Q4

REPORT INFORMATION
  Report Type: Spontaneous
  Country: US (occurrence: None)
  Receive Date: 20121025
  Receipt Date: 20121025
  Transmission Date: 20130627
  Serious: No
  Sender: FDA-Public Use
  Company Number: None

PATIENT
  Age: 66 Year
  Sex: Male
  Weight: 122.7 kg

DRUGS (1)
  1. OXALIPLATIN [Suspect]
     Indication: COLON CANCER
     Dosage: MG
     Dates: start: 20121011, end: 20121011

REACTIONS (10)
  - Dysphonia [None]
  - Muscle spasms [None]
  - Muscle spasms [None]
  - Abdominal pain upper [None]
  - Dysarthria [None]
  - Abasia [None]
  - Myalgia [None]
  - Nausea [None]
  - Vomiting [None]
  - Dysphagia [None]
